FAERS Safety Report 12268020 (Version 1)
Quarter: 2016Q2

REPORT INFORMATION
  Report Type: Spontaneous
  Country: US (occurrence: US)
  Receive Date: 20160414
  Receipt Date: 20160414
  Transmission Date: 20160815
  Serious: No
  Sender: FDA-Public Use
  Company Number: US-DRREDDYS-USA/USA/16/0055334

PATIENT
  Age: 64 Year
  Sex: Female

DRUGS (5)
  1. ISOTRETINOIN NOT OTHERWISE SPECIFIED [Suspect]
     Active Substance: ISOTRETINOIN
     Route: 065
  2. CLOBETASOL [Concomitant]
     Active Substance: CLOBETASOL
     Indication: ECZEMA
     Route: 065
  3. ISOTRETINOIN NOT OTHERWISE SPECIFIED [Suspect]
     Active Substance: ISOTRETINOIN
     Indication: PUSTULAR PSORIASIS
     Route: 065
  4. CALCITRIOL. [Concomitant]
     Active Substance: CALCITRIOL
     Indication: PUSTULAR PSORIASIS
  5. TAZAROTENE [Concomitant]
     Active Substance: TAZAROTENE
     Indication: PUSTULAR PSORIASIS
     Route: 065

REACTIONS (2)
  - Cheilitis [Unknown]
  - Dry skin [Unknown]
